FAERS Safety Report 18300779 (Version 2)
Quarter: 2021Q2

REPORT INFORMATION
  Report Type: Other
  Country: CA (occurrence: CA)
  Receive Date: 20200923
  Receipt Date: 20210405
  Transmission Date: 20210717
  Serious: Yes (Other)
  Sender: FDA-Public Use
  Company Number: CA-CELLTRION INC.-2020CA026080

PATIENT

DRUGS (10)
  1. ASPIRIN [ACETYLSALICYLIC ACID] [Concomitant]
     Active Substance: ASPIRIN
  2. GABAPENTIN. [Concomitant]
     Active Substance: GABAPENTIN
  3. METHYLPREDNISOLONE. [Concomitant]
     Active Substance: METHYLPREDNISOLONE
     Indication: PREMEDICATION
     Dosage: 100 MG
     Route: 042
  4. RITUXIMAB (UNKNOWN) [Suspect]
     Active Substance: RITUXIMAB
     Indication: RHEUMATOID ARTHRITIS
     Dosage: 1000 MG, 1 EVERY 15 DAYS
     Route: 041
  5. DIPHENHYDRAMINE HYDROCHLORIDE. [Concomitant]
     Active Substance: DIPHENHYDRAMINE HYDROCHLORIDE
     Indication: PREMEDICATION
     Dosage: 50 MG
     Route: 048
  6. ACETAMINOPHEN. [Concomitant]
     Active Substance: ACETAMINOPHEN
     Indication: PREMEDICATION
     Dosage: 650 MG
     Route: 048
  7. FOLIC ACID. [Concomitant]
     Active Substance: FOLIC ACID
  8. LORAZEPAM. [Concomitant]
     Active Substance: LORAZEPAM
     Indication: PREMEDICATION
     Dosage: 650 MG
     Route: 048
  9. METHOTREXATE. [Concomitant]
     Active Substance: METHOTREXATE
     Route: 048
  10. CLARITIN [Concomitant]
     Active Substance: LORATADINE

REACTIONS (9)
  - Lower respiratory tract infection [Not Recovered/Not Resolved]
  - Pneumonia [Not Recovered/Not Resolved]
  - Off label use [Unknown]
  - Dyspnoea [Not Recovered/Not Resolved]
  - Nasopharyngitis [Not Recovered/Not Resolved]
  - Pyrexia [Not Recovered/Not Resolved]
  - Vitamin B12 decreased [Not Recovered/Not Resolved]
  - Cough [Not Recovered/Not Resolved]
  - Vitamin D decreased [Not Recovered/Not Resolved]
